FAERS Safety Report 4669063-2 (Version None)
Quarter: 2005Q2

REPORT INFORMATION
  Report Type: 
  Country: None (occurrence: None)
  Receive Date: 20050519
  Receipt Date: 20050502
  Transmission Date: 20051028
  Serious: Yes (Hospitalization)
  Sender: FDA-Public Use
  Company Number: 2005UW06144

PATIENT
  Age: 44 Year
  Sex: Male

DRUGS (9)
  1. CRESTOR [Suspect]
     Dosage: 10 MG PO
     Route: 048
  2. CRESTOR [Suspect]
     Dosage: 10 MG
     Dates: start: 20050214
  3. CRESTOR [Suspect]
     Dosage: 10 MG BID PO
     Route: 048
     Dates: start: 20050303, end: 20050317
  4. LOPID [Concomitant]
  5. LIPITOR [Concomitant]
  6. METFORMIN HCL [Concomitant]
  7. GLIPIZIDE [Concomitant]
  8. LISINOPRIL [Concomitant]
  9. ACETYLSALICYLIC ACID [Concomitant]

REACTIONS (2)
  - LOW DENSITY LIPOPROTEIN INCREASED [None]
  - RHABDOMYOLYSIS [None]
